FAERS Safety Report 5886959-4 (Version None)
Quarter: 2008Q3

REPORT INFORMATION
  Report Type: 
  Country: None (occurrence: None)
  Receive Date: 20080917
  Receipt Date: 20080826
  Transmission Date: 20090109
  Serious: No
  Sender: FDA-Public Use
  Company Number: US-B.I. PHARMACEUTICALS,INC./RIDGEFIELD-2008-BP-13768BP

PATIENT
  Sex: Male

DRUGS (4)
  1. MIRAPEX [Suspect]
     Indication: PARKINSON'S DISEASE
     Route: 048
     Dates: start: 20050101, end: 20070801
  2. PROVIGIL [Concomitant]
  3. COMTAN [Concomitant]
     Indication: PARKINSON'S DISEASE
  4. SELEGILINE HCL [Concomitant]
     Indication: PARKINSON'S DISEASE

REACTIONS (4)
  - DYSKINESIA [None]
  - OBSESSIVE THOUGHTS [None]
  - RESTLESSNESS [None]
  - SOMNOLENCE [None]
